FAERS Safety Report 20220743 (Version 2)
Quarter: 2022Q1

REPORT INFORMATION
  Report Type: Spontaneous
  Country: IT (occurrence: IT)
  Receive Date: 20211223
  Receipt Date: 20220103
  Transmission Date: 20220423
  Serious: Yes (Other)
  Sender: FDA-Public Use
  Company Number: IT-TAKEDA-2021TUS079712

PATIENT
  Age: 60 Year
  Sex: Male

DRUGS (10)
  1. DEXAMETHASONE [Suspect]
     Active Substance: DEXAMETHASONE
     Indication: Philadelphia positive acute lymphocytic leukaemia
     Route: 065
  2. CYCLOPHOSPHAMIDE [Suspect]
     Active Substance: CYCLOPHOSPHAMIDE
     Indication: Philadelphia positive acute lymphocytic leukaemia
     Route: 065
  3. VINCRISTINE SULFATE [Suspect]
     Active Substance: VINCRISTINE SULFATE
     Indication: Philadelphia positive acute lymphocytic leukaemia
     Route: 065
  4. ADRIAMYCIN [Suspect]
     Active Substance: DOXORUBICIN HYDROCHLORIDE
     Indication: Philadelphia positive acute lymphocytic leukaemia
     Route: 065
  5. PONATINIB [Concomitant]
     Active Substance: PONATINIB
     Indication: Philadelphia positive acute lymphocytic leukaemia
     Dosage: CONTINUED FOR 93 DAYS.
  6. PONATINIB [Concomitant]
     Active Substance: PONATINIB
  7. PONATINIB [Concomitant]
     Active Substance: PONATINIB
     Dosage: REDUCED
  8. PONATINIB [Concomitant]
     Active Substance: PONATINIB
     Dosage: RESTARTED
  9. PREDNISONE [Concomitant]
     Active Substance: PREDNISONE
     Indication: Philadelphia positive acute lymphocytic leukaemia
  10. PREDNISONE [Concomitant]
     Active Substance: PREDNISONE
     Dosage: TAPERED AND STOPPED ON DAY 28

REACTIONS (1)
  - Febrile neutropenia [Unknown]
